FAERS Safety Report 20975899 (Version 5)
Quarter: 2022Q4

REPORT INFORMATION
  Report Type: Report from Study
  Country: FR (occurrence: FR)
  Receive Date: 20220617
  Receipt Date: 20221006
  Transmission Date: 20230113
  Serious: Yes (Other)
  Sender: FDA-Public Use
  Company Number: FR-NOVARTISPH-NVSC2022FR139325

PATIENT
  Sex: Female
  Weight: 50 kg

DRUGS (5)
  1. TABRECTA [Suspect]
     Active Substance: CAPMATINIB
     Indication: Non-small cell lung cancer
     Dosage: 400X2
     Route: 048
     Dates: start: 20220414, end: 20220603
  2. TABRECTA [Suspect]
     Active Substance: CAPMATINIB
     Dosage: 600 MG, QD (300X2)
     Route: 048
     Dates: start: 20220621, end: 20220628
  3. TABRECTA [Suspect]
     Active Substance: CAPMATINIB
     Dosage: 400 MG, QD
     Route: 048
     Dates: start: 20220718, end: 20220725
  4. ATORVASTATIN [Concomitant]
     Active Substance: ATORVASTATIN
     Indication: Product used for unknown indication
     Dosage: 10 MG
     Route: 048
     Dates: start: 20220628
  5. ESOMEPRAZOLE [Concomitant]
     Active Substance: ESOMEPRAZOLE
     Indication: Product used for unknown indication
     Dosage: 20 MG
     Route: 048
     Dates: start: 20220628

REACTIONS (5)
  - Hepatic cytolysis [Not Recovered/Not Resolved]
  - Gamma-glutamyltransferase increased [Unknown]
  - Alanine aminotransferase increased [Unknown]
  - Aspartate aminotransferase increased [Unknown]
  - Oedema peripheral [Unknown]

NARRATIVE: CASE EVENT DATE: 20220509
